FAERS Safety Report 7870483-3 (Version None)
Quarter: 2011Q4

REPORT INFORMATION
  Report Type: 
  Country: None (occurrence: None)
  Receive Date: 20111029
  Receipt Date: 20110216
  Transmission Date: 20120403
  Serious: No
  Sender: FDA-Public Use
  Company Number: US-AMGEN-USASP2011009215

PATIENT
  Sex: Male

DRUGS (1)
  1. ENBREL [Suspect]
     Indication: RHEUMATOID ARTHRITIS
     Dates: start: 20110123

REACTIONS (5)
  - DRUG INEFFECTIVE [None]
  - INFECTION [None]
  - ULCER [None]
  - ARTHRITIS [None]
  - WOUND SECRETION [None]
